FAERS Safety Report 20537897 (Version 1)
Quarter: 2022Q1

REPORT INFORMATION
  Report Type: Spontaneous
  Country: US (occurrence: None)
  Receive Date: 20220301
  Receipt Date: 20220301
  Transmission Date: 20220423
  Serious: Yes (Other)
  Sender: FDA-Public Use
  Company Number: None

PATIENT
  Age: 82 Year
  Sex: Male
  Weight: 78.75 kg

DRUGS (13)
  1. BUPRENORPHINE AND NALOXONE NOS [Suspect]
     Active Substance: BUPRENORPHINE HYDROCHLORIDE\NALOXONE HYDROCHLORIDE OR BUPRENORPHINE\NALOXONE
     Indication: Pain
     Dosage: OTHER QUANTITY : 1 TABLET(S);?FREQUENCY : TWICE A DAY;?
     Route: 060
  2. OXYCODONE [Concomitant]
     Active Substance: OXYCODONE
  3. FUROSEMIDE [Concomitant]
     Active Substance: FUROSEMIDE
  4. LEVOTHYROXINE [Concomitant]
     Active Substance: LEVOTHYROXINE
  5. AMLODIPINE [Concomitant]
     Active Substance: AMLODIPINE BESYLATE
  6. DULOXETINE [Concomitant]
     Active Substance: DULOXETINE
  7. IPROTROPIUM [Concomitant]
  8. RAMIPRIL [Concomitant]
     Active Substance: RAMIPRIL
  9. METFORMIN [Concomitant]
     Active Substance: METFORMIN HYDROCHLORIDE
  10. PRAVASTATIN [Concomitant]
     Active Substance: PRAVASTATIN
  11. TYLENOL [Concomitant]
     Active Substance: ACETAMINOPHEN
  12. MAGNESIUM [Concomitant]
     Active Substance: MAGNESIUM
  13. VITAMIN D [Concomitant]
     Active Substance: VITAMIN D NOS

REACTIONS (1)
  - Tooth infection [None]

NARRATIVE: CASE EVENT DATE: 20220124
